FAERS Safety Report 14326722 (Version 1)
Quarter: 2017Q4

REPORT INFORMATION
  Report Type: Spontaneous
  Country: US (occurrence: US)
  Receive Date: 20171226
  Receipt Date: 20171226
  Transmission Date: 20180321
  Serious: Yes (Hospitalization)
  Sender: FDA-Public Use
  Company Number: None

PATIENT
  Age: 72 Year
  Sex: Female

DRUGS (12)
  1. FASLODEX [Concomitant]
     Active Substance: FULVESTRANT
  2. PAROXETINE. [Concomitant]
     Active Substance: PAROXETINE
  3. CALCIUM [Concomitant]
     Active Substance: CALCIUM
  4. CRANBERRY. [Concomitant]
     Active Substance: CRANBERRY
  5. TYLENOL/COD [Concomitant]
  6. IBRANCE [Suspect]
     Active Substance: PALBOCICLIB
     Indication: BREAST CANCER
     Route: 048
     Dates: start: 20170225
  7. SIMVASTATIN. [Concomitant]
     Active Substance: SIMVASTATIN
  8. LOVENOX [Concomitant]
     Active Substance: ENOXAPARIN SODIUM
  9. MULTI-VITAMIN [Concomitant]
     Active Substance: .ALPHA.-TOCOPHEROL ACETATE, DL-\ASCORBIC ACID\CYANOCOBALAMIN\FLUORIDE ION\FOLIC ACID\NIACIN\PYRIDOXINE\RIBOFLAVIN\THIAMINE\VITAMIN A\VITAMIN D
  10. OMEPRAZOLE. [Concomitant]
     Active Substance: OMEPRAZOLE
  11. PROCHLORPER [Concomitant]
  12. TEMAZEPAM. [Concomitant]
     Active Substance: TEMAZEPAM

REACTIONS (1)
  - Pulmonary embolism [None]

NARRATIVE: CASE EVENT DATE: 20171117
